FAERS Safety Report 6413071-8 (Version None)
Quarter: 2009Q4

REPORT INFORMATION
  Report Type: 
  Country: None (occurrence: None)
  Receive Date: 20091022
  Receipt Date: 20091022
  Transmission Date: 20100525
  Serious: No
  Sender: FDA-Public Use
  Company Number: None

PATIENT

DRUGS (3)
  1. FLUOROURACIL [Suspect]
     Indication: COLORECTAL CANCER
     Dosage: ANY ANY IV   (IN USE FOR 40 YEARS)
     Route: 042
  2. FLUOROURACIL [Suspect]
     Indication: INFLAMMATORY CARCINOMA OF THE BREAST
     Dosage: ANY ANY IV   (IN USE FOR 40 YEARS)
     Route: 042
  3. FLUOROURACIL [Suspect]
     Indication: PANCREATIC CARCINOMA
     Dosage: ANY ANY IV   (IN USE FOR 40 YEARS)
     Route: 042

REACTIONS (1)
  - NO ADVERSE EVENT [None]
